FAERS Safety Report 15396421 (Version 1)
Quarter: 2018Q3

REPORT INFORMATION
  Report Type: Spontaneous
  Country: US (occurrence: US)
  Receive Date: 20180911
  Receipt Date: 20180911
  Transmission Date: 20181010
  Serious: No
  Sender: FDA-Public Use
  Company Number: None

PATIENT
  Age: 78 Year
  Sex: Female

DRUGS (2)
  1. OPSUMIT [Concomitant]
     Active Substance: MACITENTAN
  2. ADCIRCA [Suspect]
     Active Substance: TADALAFIL
     Dates: start: 20180111

REACTIONS (3)
  - Catheterisation cardiac [None]
  - Therapy change [None]
  - Arteriogram coronary [None]

NARRATIVE: CASE EVENT DATE: 20180911
